FAERS Safety Report 18304857 (Version 6)
Quarter: 2021Q2

REPORT INFORMATION
  Report Type: Spontaneous
  Country: US (occurrence: US)
  Receive Date: 20200923
  Receipt Date: 20210513
  Transmission Date: 20210717
  Serious: No
  Sender: FDA-Public Use
  Company Number: US-PFIZER INC-2020321397

PATIENT
  Age: 58 Year
  Sex: Female

DRUGS (2)
  1. IBRANCE [Suspect]
     Active Substance: PALBOCICLIB
     Dosage: 100 MG, CYCLIC (100 MG QD (ONCE DAILY) X 21 DAYS)
     Dates: start: 20180124
  2. IBRANCE [Suspect]
     Active Substance: PALBOCICLIB
     Indication: BREAST CANCER FEMALE
     Dosage: 125 MG, CYCLIC (EVERY DAY FOR 21 DAYS Q 28 DAYS, DAYS 1?21)
     Dates: start: 20180123

REACTIONS (7)
  - Hypoaesthesia [Unknown]
  - COVID-19 [Not Recovered/Not Resolved]
  - Musculoskeletal stiffness [Unknown]
  - White blood cell count decreased [Unknown]
  - Arthralgia [Unknown]
  - Paraesthesia [Unknown]
  - Muscle spasms [Unknown]

NARRATIVE: CASE EVENT DATE: 2020
